FAERS Safety Report 13841316 (Version 1)
Quarter: 2017Q3

REPORT INFORMATION
  Report Type: Spontaneous
  Country: ES (occurrence: ES)
  Receive Date: 20170807
  Receipt Date: 20170807
  Transmission Date: 20171127
  Serious: Yes (Other)
  Sender: FDA-Public Use
  Company Number: ES-BAYER-2017-146346

PATIENT
  Age: 32 Year
  Sex: Female

DRUGS (10)
  1. ASPIRIN. [Suspect]
     Active Substance: ASPIRIN
     Dosage: 100 MG, QD
  2. DEXAMETHASONE. [Suspect]
     Active Substance: DEXAMETHASONE
     Indication: OPTIC NERVE INJURY
     Dosage: 4 MG/24HR (2MG/12H), UNK
  3. HEPARIN [Suspect]
     Active Substance: HEPARIN SODIUM
     Route: 042
  4. HEPARIN [Interacting]
     Active Substance: HEPARIN SODIUM
     Indication: ANTICOAGULANT THERAPY
     Dosage: DECREASED TO A PROPHYLACTIC DOSE
  5. HEPARIN [Interacting]
     Active Substance: HEPARIN SODIUM
     Indication: ANTICOAGULANT THERAPY
     Dosage: ANTICOAGULATION DOSE
  6. DEXAMETHASONE. [Suspect]
     Active Substance: DEXAMETHASONE
     Indication: HELLP SYNDROME
     Dosage: 4 MG, TID
     Route: 042
  7. LINEZOLID. [Suspect]
     Active Substance: LINEZOLID
     Indication: BRAIN ABSCESS
     Dosage: 1200 MG/24HR (600 MG/12 H), UNK
  8. LINEZOLID. [Suspect]
     Active Substance: LINEZOLID
     Indication: LISTERIOSIS
  9. HEPARIN [Interacting]
     Active Substance: HEPARIN SODIUM
     Indication: ANTICOAGULANT THERAPY
     Dosage: ANTICOAGULATION DOSE
  10. PREDNISONE. [Suspect]
     Active Substance: PREDNISONE
     Indication: HELLP SYNDROME
     Dosage: 20 MG/24HR ((10MG/12HR)), UNK

REACTIONS (9)
  - Drug administration error [None]
  - Cerebral haemorrhage [Recovered/Resolved]
  - Thrombocytopenia [Recovered/Resolved]
  - HELLP syndrome [Recovered/Resolved]
  - Premature delivery [Recovered/Resolved]
  - Listeriosis [Recovered/Resolved]
  - Labelled drug-drug interaction medication error [None]
  - Brain abscess [Recovered/Resolved]
  - Maternal exposure during pregnancy [None]
